FAERS Safety Report 24810776 (Version 1)
Quarter: 2025Q1

REPORT INFORMATION
  Report Type: Report from Study
  Country: SE (occurrence: SE)
  Receive Date: 20250106
  Receipt Date: 20250106
  Transmission Date: 20250409
  Serious: Yes (Hospitalization, Other)
  Sender: ABBVIE
  Company Number: SE-ABBVIE-6071676

PATIENT
  Age: 74 Year
  Sex: Male

DRUGS (2)
  1. CARBIDOPA\LEVODOPA [Suspect]
     Active Substance: CARBIDOPA\LEVODOPA
     Indication: Parkinson^s disease
     Route: 050
     Dates: start: 20200914
  2. CARBIDOPA\LEVODOPA [Suspect]
     Active Substance: CARBIDOPA\LEVODOPA

REACTIONS (14)
  - Femoral neck fracture [Recovering/Resolving]
  - Gait disturbance [Unknown]
  - Head injury [Unknown]
  - Weight decreased [Unknown]
  - Swelling [Unknown]
  - Stoma site discharge [Unknown]
  - Stoma site erythema [Unknown]
  - Stoma site haemorrhage [Unknown]
  - Fall [Unknown]
  - Craniofacial fracture [Unknown]
  - Loss of consciousness [Unknown]
  - Full blood count decreased [Unknown]
  - Dizziness [Unknown]
  - Hypotension [Unknown]

NARRATIVE: CASE EVENT DATE: 20241201
